FAERS Safety Report 14424048 (Version 3)
Quarter: 2018Q3

REPORT INFORMATION
  Report Type: Spontaneous
  Country: FR (occurrence: FR)
  Receive Date: 20180123
  Receipt Date: 20180709
  Transmission Date: 20181010
  Serious: Yes (Hospitalization, Other)
  Sender: FDA-Public Use
  Company Number: PHHY2017FR199654

PATIENT
  Age: 60 Year
  Sex: Male
  Weight: 63 kg

DRUGS (22)
  1. OXALIPLATIN. [Suspect]
     Active Substance: OXALIPLATIN
     Indication: COLORECTAL CANCER METASTATIC
     Dosage: 160 MG, CYCLIC (FIRST CYCLE)
     Route: 042
     Dates: start: 20170116
  2. 5?FLUOROURACIL [Suspect]
     Active Substance: FLUOROURACIL
     Indication: COLORECTAL CANCER METASTATIC
     Dosage: FOURTH CYCLE
     Route: 040
  3. 5?FLUOROURACIL [Suspect]
     Active Substance: FLUOROURACIL
     Dosage: FIRST CYCLE
     Route: 041
     Dates: start: 20170116
  4. 5?FLUOROURACIL [Suspect]
     Active Substance: FLUOROURACIL
     Dosage: NINETH CYCLE
     Route: 041
  5. 5?FLUOROURACIL [Suspect]
     Active Substance: FLUOROURACIL
     Dosage: FOURTH CYCLE
     Route: 041
  6. ELVORINE [Suspect]
     Active Substance: LEUCOVORIN CALCIUM
     Dosage: NINETH CYCLE
     Route: 042
  7. IRINOTECAN [Suspect]
     Active Substance: IRINOTECAN
     Dosage: FIRST CYCLE
     Route: 042
     Dates: start: 20170116
  8. ELVORINE [Suspect]
     Active Substance: LEUCOVORIN CALCIUM
     Indication: COLORECTAL CANCER METASTATIC
     Dosage: FIRST CYCLE
     Route: 042
  9. OXALIPLATIN. [Suspect]
     Active Substance: OXALIPLATIN
     Dosage: 120 MG, FOURTH AND EIGHT CYCLE
     Route: 042
     Dates: start: 20170404, end: 20170502
  10. 5?FLUOROURACIL [Suspect]
     Active Substance: FLUOROURACIL
     Dosage: FIRST CYCLE
     Route: 040
     Dates: start: 20170116
  11. 5?FLUOROURACIL [Suspect]
     Active Substance: FLUOROURACIL
     Dosage: NINETH CYCLE
     Route: 040
  12. AVASTIN [Suspect]
     Active Substance: BEVACIZUMAB
     Indication: COLORECTAL CANCER METASTATIC
     Dosage: FOURTH CYCLE
     Route: 042
  13. IRINOTECAN [Suspect]
     Active Substance: IRINOTECAN
     Dosage: FOURTH CYCLE
     Route: 042
  14. ELVORINE [Suspect]
     Active Substance: LEUCOVORIN CALCIUM
     Dosage: 13 TH CYCLE
     Route: 042
  15. AVASTIN [Suspect]
     Active Substance: BEVACIZUMAB
     Dosage: 13 TH CYCLE
     Route: 042
  16. IRINOTECAN [Suspect]
     Active Substance: IRINOTECAN
     Dosage: NINETH CYCLE
     Route: 042
  17. OXALIPLATIN. [Suspect]
     Active Substance: OXALIPLATIN
     Dosage: 160 MG, SIXTH CYCLE
     Route: 042
  18. 5?FLUOROURACIL [Suspect]
     Active Substance: FLUOROURACIL
     Dosage: 13 TH CYCLE
     Route: 041
  19. AVASTIN [Suspect]
     Active Substance: BEVACIZUMAB
     Dosage: 9TH CYCLE
     Route: 042
  20. 5?FLUOROURACIL [Suspect]
     Active Substance: FLUOROURACIL
     Dosage: 13 TH CYCLE
     Route: 040
  21. AVASTIN [Suspect]
     Active Substance: BEVACIZUMAB
     Dosage: FIRST CYCLE
     Route: 042
     Dates: start: 20170116
  22. IRINOTECAN [Suspect]
     Active Substance: IRINOTECAN
     Indication: COLORECTAL CANCER METASTATIC
     Dosage: 13 TH CYCLE
     Route: 042

REACTIONS (6)
  - Intestinal obstruction [Recovered/Resolved]
  - Anal fissure [Unknown]
  - Asthenia [Recovered/Resolved]
  - Neutropenia [Recovered/Resolved]
  - Epistaxis [Recovered/Resolved]
  - Decreased appetite [Recovered/Resolved]

NARRATIVE: CASE EVENT DATE: 20170117
